FAERS Safety Report 22197193 (Version 1)
Quarter: 2023Q2

REPORT INFORMATION
  Report Type: Spontaneous
  Country: CN (occurrence: CN)
  Receive Date: 20230411
  Receipt Date: 20230411
  Transmission Date: 20230721
  Serious: Yes (Other)
  Sender: FDA-Public Use
  Company Number: CN-BAYER-2023A043502

PATIENT
  Age: 61 Year
  Sex: Male

DRUGS (3)
  1. AVELOX [Suspect]
     Active Substance: MOXIFLOXACIN HYDROCHLORIDE
     Indication: Pneumonia bacterial
     Dosage: 0.4 G, QD
     Route: 048
     Dates: start: 20230324, end: 20230329
  2. SODIUM CHLORIDE [Concomitant]
     Active Substance: SODIUM CHLORIDE
     Indication: Vehicle solution use
     Dosage: 100 ML, BID
     Route: 041
     Dates: start: 20230324
  3. PIPERACILLIN AND TAZOBACTAM [Concomitant]
     Active Substance: PIPERACILLIN SODIUM\TAZOBACTAM SODIUM
     Indication: Pneumonia bacterial
     Dosage: 2.25 G, Q12H
     Route: 041
     Dates: start: 20230324

REACTIONS (5)
  - Delirium [Unknown]
  - Hallucination, visual [None]
  - Altered state of consciousness [None]
  - Persecutory delusion [None]
  - Disorganised speech [None]

NARRATIVE: CASE EVENT DATE: 20230329
